FAERS Safety Report 9241652 (Version 2)
Quarter: 2013Q3

REPORT INFORMATION
  Report Type: Spontaneous
  Country: US (occurrence: US)
  Receive Date: 20130419
  Receipt Date: 20130820
  Transmission Date: 20140515
  Serious: Yes (Other)
  Sender: FDA-Public Use
  Company Number: US-BRISTOL-MYERS SQUIBB COMPANY-18778167

PATIENT
  Age: 73 Year
  Sex: Female

DRUGS (4)
  1. BYETTA [Suspect]
  2. BYDUREON [Suspect]
     Indication: TYPE 2 DIABETES MELLITUS
     Route: 058
     Dates: start: 20130405
  3. METFORMIN [Concomitant]
  4. VYTORIN [Concomitant]

REACTIONS (5)
  - Cataract [Unknown]
  - Blood glucose increased [Recovering/Resolving]
  - Injection site extravasation [Unknown]
  - Drug dose omission [Unknown]
  - Injection site haemorrhage [Recovered/Resolved]
